FAERS Safety Report 6671198-X (Version None)
Quarter: 2010Q2

REPORT INFORMATION
  Report Type: 
  Country: None (occurrence: None)
  Receive Date: 20100407
  Receipt Date: 20100331
  Transmission Date: 20101027
  Serious: Yes (Other)
  Sender: FDA-Public Use
  Company Number: US-ELI_LILLY_AND_COMPANY-US201004000353

PATIENT
  Age: 21 Year
  Sex: Female

DRUGS (4)
  1. HUMALOG [Suspect]
     Indication: DIABETES MELLITUS
     Dosage: UNK, AS NEEDED
  2. HUMALOG [Suspect]
     Dosage: UNK, AS NEEDED
     Dates: start: 19950101
  3. HUMULIN N [Suspect]
     Indication: DIABETES MELLITUS
  4. LANTUS [Concomitant]

REACTIONS (7)
  - FEELING ABNORMAL [None]
  - HYPOGLYCAEMIC SEIZURE [None]
  - HYSTERECTOMY [None]
  - IMPAIRED GASTRIC EMPTYING [None]
  - LOWER LIMB FRACTURE [None]
  - MENISCUS LESION [None]
  - SHOULDER OPERATION [None]
